FAERS Safety Report 19448998 (Version 1)
Quarter: 2021Q2

REPORT INFORMATION
  Report Type: Report from Study
  Country: IL (occurrence: IL)
  Receive Date: 20210622
  Receipt Date: 20210622
  Transmission Date: 20210717
  Serious: Yes (Death, Hospitalization)
  Sender: FDA-Public Use
  Company Number: IL-ROCHE-2848289

PATIENT
  Age: 71 Year
  Sex: Male
  Weight: 65 kg

DRUGS (21)
  1. VENOFER [Concomitant]
     Active Substance: IRON SUCROSE
     Indication: ANAEMIA
     Route: 042
     Dates: start: 20210610, end: 20210610
  2. SODIUM CHLORIDE. [Concomitant]
     Active Substance: SODIUM CHLORIDE
     Route: 042
     Dates: start: 20210610, end: 20210612
  3. BONDORMIN [Concomitant]
     Active Substance: BROTIZOLAM
     Route: 048
     Dates: start: 20210610, end: 20210610
  4. NOVORAPID [Concomitant]
     Active Substance: INSULIN ASPART
     Indication: DIABETES MELLITUS
     Dosage: 3 U
     Route: 048
     Dates: start: 20210611, end: 20210612
  5. CALCIUM GLUCONATE. [Concomitant]
     Active Substance: CALCIUM GLUCONATE
     Indication: HYPOKALAEMIA
     Route: 042
     Dates: start: 20210611, end: 20210612
  6. AEROVENT (ISRAEL) [Concomitant]
     Indication: DYSPNOEA
     Dosage: 2 PUFF
     Route: 048
     Dates: start: 20210611, end: 20210612
  7. JARDIANCE [Concomitant]
     Active Substance: EMPAGLIFLOZIN
     Indication: DIABETES MELLITUS
     Route: 048
     Dates: start: 201606
  8. JANUET [Concomitant]
     Active Substance: METFORMIN HYDROCHLORIDE\SITAGLIPTIN PHOSPHATE
     Indication: DIABETES MELLITUS
     Route: 048
     Dates: start: 201606
  9. LIPITOR [Concomitant]
     Active Substance: ATORVASTATIN CALCIUM
     Indication: HYPERLIPIDAEMIA
     Route: 048
     Dates: start: 201606
  10. ZYPREXA [Concomitant]
     Active Substance: OLANZAPINE
     Indication: NAUSEA
     Route: 048
     Dates: start: 20210607
  11. REOLIN [Concomitant]
     Indication: DYSPNOEA
     Route: 048
     Dates: start: 20210612, end: 20210612
  12. SOPA K [Concomitant]
     Indication: HYPOKALAEMIA
     Route: 048
     Dates: start: 20210611, end: 20210611
  13. CALCIUM CARBONATE. [Concomitant]
     Active Substance: CALCIUM CARBONATE
     Indication: HYPOKALAEMIA
     Route: 048
     Dates: start: 20210611, end: 20210612
  14. FOSTER [Concomitant]
     Active Substance: BECLOMETHASONE\FORMOTEROL
     Indication: DYSPNOEA
     Dosage: 1 PUFF
     Route: 048
     Dates: start: 20210612, end: 20210612
  15. ATEZOLIZUMAB. [Suspect]
     Active Substance: ATEZOLIZUMAB
     Indication: OESOPHAGEAL CARCINOMA
     Route: 042
     Dates: start: 20210602
  16. LORIVAN [Concomitant]
     Active Substance: LORAZEPAM
     Route: 048
     Dates: start: 20210302
  17. CISPLATIN. [Suspect]
     Active Substance: CISPLATIN
     Indication: OESOPHAGEAL CARCINOMA
     Route: 042
     Dates: start: 20210602
  18. TARODENT [Concomitant]
     Indication: ORAL CANDIDIASIS
     Route: 048
     Dates: start: 20210602, end: 20210607
  19. 5?FLUOROURACIL [Suspect]
     Active Substance: FLUOROURACIL
     Indication: OESOPHAGEAL CARCINOMA
     Route: 042
     Dates: start: 20210602
  20. DUODART [Concomitant]
     Active Substance: DUTASTERIDE\TAMSULOSIN
     Indication: BENIGN PROSTATIC HYPERPLASIA
     Dosage: 30 CAPSULE
     Route: 048
     Dates: start: 202005
  21. DEXTROSE. [Concomitant]
     Active Substance: DEXTROSE
     Indication: HYPOKALAEMIA
     Route: 042
     Dates: start: 20210611, end: 20210612

REACTIONS (2)
  - Embolism [Fatal]
  - Prerenal failure [Recovered/Resolved]

NARRATIVE: CASE EVENT DATE: 20210610
